FAERS Safety Report 23990279 (Version 1)
Quarter: 2024Q2

REPORT INFORMATION
  Report Type: Spontaneous
  Country: US (occurrence: US)
  Receive Date: 20240619
  Receipt Date: 20240619
  Transmission Date: 20240715
  Serious: Yes (Hospitalization, Other)
  Sender: FDA-Public Use
  Company Number: US-BRISTOL-MYERS SQUIBB COMPANY-2024-094399

PATIENT
  Age: 69 Year
  Sex: Male
  Weight: 32.66 kg

DRUGS (8)
  1. POMALYST [Suspect]
     Active Substance: POMALIDOMIDE
     Indication: Plasma cell myeloma
     Dosage: ONE DAILY FOR 21 DAYS, OFF 7 DAYS
     Route: 048
     Dates: start: 20200909
  2. ACYCLOVIR [Concomitant]
     Active Substance: ACYCLOVIR
  3. ZOMETA [Concomitant]
     Active Substance: ZOLEDRONIC ACID
     Dosage: 4 MG/100 ML INJECTION
  4. DARZALEX [Concomitant]
     Active Substance: DARATUMUMAB
     Dosage: 400 MG/20 ML INJ, 1 VIAL
  5. LORAZEPAM [Concomitant]
     Active Substance: LORAZEPAM
  6. MONTELUKAST [Concomitant]
     Active Substance: MONTELUKAST SODIUM
  7. DEXAMETHASONE [Concomitant]
     Active Substance: DEXAMETHASONE
  8. LORATADINE [Concomitant]
     Active Substance: LORATADINE

REACTIONS (2)
  - Pancytopenia [Unknown]
  - Human anaplasmosis [Unknown]

NARRATIVE: CASE EVENT DATE: 20240609
